FAERS Safety Report 20315375 (Version 1)
Quarter: 2022Q1

REPORT INFORMATION
  Report Type: Other
  Country: US (occurrence: None)
  Receive Date: 20220110
  Receipt Date: 20220110
  Transmission Date: 20220423
  Serious: No
  Sender: FDA-Public Use
  Company Number: US-ROCHE-2818798

PATIENT
  Age: 13 Year
  Sex: Male

DRUGS (1)
  1. RITUXIMAB [Suspect]
     Active Substance: RITUXIMAB
     Indication: Multiple sclerosis
     Route: 065

REACTIONS (5)
  - Paraesthesia [Unknown]
  - Dysarthria [Unknown]
  - Paraesthesia [Unknown]
  - Migraine [Unknown]
  - Headache [Unknown]
